FAERS Safety Report 25761841 (Version 3)
Quarter: 2025Q4

REPORT INFORMATION
  Report Type: Report from Study
  Country: JP (occurrence: JP)
  Receive Date: 20250904
  Receipt Date: 20251209
  Transmission Date: 20260118
  Serious: Yes (Hospitalization)
  Sender: BIOGEN
  Company Number: JP-BIOGEN-2025BI01322780

PATIENT
  Age: 1 Year
  Sex: Male
  Weight: 9.2 kg

DRUGS (12)
  1. SPINRAZA [Suspect]
     Active Substance: NUSINERSEN
     Indication: Spinal muscular atrophy
     Dosage: FREQUENCY TEXT:INITIAL ADMINISTRATION
  2. SPINRAZA [Suspect]
     Active Substance: NUSINERSEN
  3. SPINRAZA [Suspect]
     Active Substance: NUSINERSEN
     Dosage: DOSAGE TEXT:THE DOSE WAS INCREASED ACCORDING TO AGE IN DAYS AS DESCRIBED IN THE LABELING.;FREQUENCY TEXT:2 WEEKS AFTER  INITIAL ADMINISTRATION
  4. SPINRAZA [Suspect]
     Active Substance: NUSINERSEN
     Dosage: DOSAGE TEXT:THE DOSE WAS INCREASED ACCORDING TO AGE IN DAYS AS DESCRIBED IN THE LABELING.;FREQUENCY TEXT:4 WEEKS AFTER  INITIAL ADMINISTRATION
  5. SPINRAZA [Suspect]
     Active Substance: NUSINERSEN
     Dosage: DOSAGE TEXT:THE DOSE WAS INCREASED ACCORDING TO AGE IN DAYS AS DESCRIBED IN THE LABELING.;FREQUENCY TEXT:9 WEEKS AFTER  INITIAL ADMINISTRATION
  6. SPINRAZA [Suspect]
     Active Substance: NUSINERSEN
     Dosage: DOSAGE TEXT:THE DOSE WAS INCREASED ACCORDING TO AGE IN DAYS AS DESCRIBED IN THE LABELING.;FREQUENCY TEXT:EVERY 4 MONTHS AFTER 9 WEEKS FROM THE IN
  7. SPINRAZA [Suspect]
     Active Substance: NUSINERSEN
     Dates: start: 20190910, end: 20190910
  8. SPINRAZA [Suspect]
     Active Substance: NUSINERSEN
     Dates: start: 20200102
  9. EMLA [Concomitant]
     Active Substance: LIDOCAINE\PRILOCAINE
     Indication: Anaesthesia procedure
     Dosage: DOSAGE TEXT:TOTAL DAILY DOSE WAS REPORTED AS UNKNOWN.;FREQUENCY TEXT:AT EACH SPINRAZA ADMINISTRATION
  10. PENTAZOCINE [Concomitant]
     Active Substance: PENTAZOCINE
     Indication: Anaesthesia procedure
     Dosage: FREQUENCY TEXT:AT EACH SPINRAZA ADMINISTRATION
  11. HYDROXYZINE HYDROCHLORIDE [Concomitant]
     Active Substance: HYDROXYZINE HYDROCHLORIDE
     Indication: Anaesthesia procedure
     Dosage: FREQUENCY TEXT:AT EACH SPINRAZA ADMINISTRATION
  12. MIDAZOLAM [Concomitant]
     Active Substance: MIDAZOLAM
     Indication: Anaesthesia procedure
     Dosage: FREQUENCY TEXT:AT EACH SPINRAZA ADMINISTRATION

REACTIONS (6)
  - Inflammatory bowel disease [Recovered/Resolved]
  - Scoliosis [Unknown]
  - Kyphosis [Unknown]
  - Weight decreased [Unknown]
  - Eczema herpeticum [Recovered/Resolved]
  - Pneumonia aspiration [Recovered/Resolved]

NARRATIVE: CASE EVENT DATE: 20191222
